FAERS Safety Report 24314395 (Version 3)
Quarter: 2025Q2

REPORT INFORMATION
  Report Type: Spontaneous
  Country: JP (occurrence: JP)
  Receive Date: 20240913
  Receipt Date: 20250605
  Transmission Date: 20250717
  Serious: Yes (Other)
  Sender: NOVEN
  Company Number: JP-NOVEN PHARMACEUTICALS, INC.-2024-NOV-JP001165

PATIENT
  Age: 43 Year
  Sex: Female
  Weight: 43 kg

DRUGS (1)
  1. ESTRADIOL [Suspect]
     Active Substance: ESTRADIOL
     Indication: Hot flush
     Route: 062

REACTIONS (1)
  - Leiomyoma [Recovering/Resolving]
